FAERS Safety Report 20633093 (Version 1)
Quarter: 2022Q1

REPORT INFORMATION
  Report Type: Spontaneous
  Country: CA (occurrence: None)
  Receive Date: 20220324
  Receipt Date: 20220324
  Transmission Date: 20220424
  Serious: Yes (Other)
  Sender: FDA-Public Use
  Company Number: 2022A116132

PATIENT
  Age: 69 Year
  Sex: Female
  Weight: 82.2 kg

DRUGS (14)
  1. FASLODEX [Suspect]
     Active Substance: FULVESTRANT
     Route: 030
  2. IBRANCE [Suspect]
     Active Substance: PALBOCICLIB
     Indication: Breast cancer
     Dosage: CYCLIC ONE CAPSULE BY MOUTH ONCE DAILY FOR 21 DAYS IN A ROW, STOP FOR 14 DAYS
     Route: 048
     Dates: start: 20200515
  3. IBRANCE [Suspect]
     Active Substance: PALBOCICLIB
     Indication: Breast cancer
     Dosage: CYCLIC ONE CAPSULE BY MOUTH ONCE DAILY FOR 21 DAYS IN A ROW, STOP FOR 7 DAYS
     Route: 048
     Dates: start: 20200613
  4. IBRANCE [Suspect]
     Active Substance: PALBOCICLIB
     Indication: Breast cancer
     Dosage: CYCLIC OD FOR 2 WEEKS ON/2 WEEKS OFF
     Route: 048
     Dates: start: 20200613
  5. IBRANCE [Suspect]
     Active Substance: PALBOCICLIB
     Indication: Breast cancer
     Dosage: CYCLIC OD FOR 2 WEEKS ON/2 WEEKS OFF
     Route: 048
     Dates: start: 20210813
  6. IBRANCE [Suspect]
     Active Substance: PALBOCICLIB
     Indication: Breast cancer
     Dosage: CYCLIC OD FOR 2 WEEKS ON/2 WEEKS OFF
     Route: 048
     Dates: start: 20211105
  7. VITAMIN C [Concomitant]
     Active Substance: ASCORBIC ACID
  8. VITAMIN D3 [Concomitant]
     Active Substance: CHOLECALCIFEROL
  9. ACTONEL [Concomitant]
     Active Substance: RISEDRONATE SODIUM
  10. ANASTROZOLE [Concomitant]
     Active Substance: ANASTROZOLE
  11. FASLODEX [Concomitant]
     Active Substance: FULVESTRANT
  12. PREGABALIN [Concomitant]
     Active Substance: PREGABALIN
  13. SYNTHROID [Concomitant]
     Active Substance: LEVOTHYROXINE SODIUM
  14. VITAMIN B12 [Concomitant]
     Active Substance: CYANOCOBALAMIN

REACTIONS (6)
  - Malignant neoplasm progression [Not Recovered/Not Resolved]
  - Full blood count abnormal [Unknown]
  - Weight decreased [Unknown]
  - Drug ineffective [Unknown]
  - Product use issue [Unknown]
  - Off label use [Unknown]

NARRATIVE: CASE EVENT DATE: 20210101
